FAERS Safety Report 5381800-0 (Version None)
Quarter: 2007Q3

REPORT INFORMATION
  Report Type: 
  Country: None (occurrence: None)
  Receive Date: 20070705
  Receipt Date: 20070705
  Transmission Date: 20080115
  Serious: Yes (Disabling)
  Sender: FDA-Public Use
  Company Number: None

PATIENT
  Age: 64 Year
  Sex: Female

DRUGS (2)
  1. ZOMETA [Suspect]
     Indication: BONE NEOPLASM MALIGNANT
  2. ZOMETA [Suspect]
     Indication: BREAST CANCER

REACTIONS (4)
  - ENDODONTIC PROCEDURE [None]
  - OSTEONECROSIS [None]
  - SENSITIVITY OF TEETH [None]
  - SWELLING [None]
